FAERS Safety Report 12736116 (Version 4)
Quarter: 2016Q4

REPORT INFORMATION
  Report Type: Spontaneous
  Country: JP (occurrence: JP)
  Receive Date: 20160913
  Receipt Date: 20161019
  Transmission Date: 20170207
  Serious: Yes (Disabling, Other)
  Sender: FDA-Public Use
  Company Number: JP-ROCHE-1829327

PATIENT
  Age: 65 Year
  Sex: Female
  Weight: 58.9 kg

DRUGS (14)
  1. LUCENTIS [Suspect]
     Active Substance: RANIBIZUMAB
     Dosage: UNK
     Route: 031
     Dates: start: 20160830, end: 20160830
  2. EYLEA [Suspect]
     Active Substance: AFLIBERCEPT
     Dosage: UNK, RIGHT
     Route: 065
     Dates: start: 20151202, end: 20151202
  3. LUCENTIS [Suspect]
     Active Substance: RANIBIZUMAB
     Dosage: UNK, RIGHT
     Route: 031
     Dates: start: 20160608, end: 20160608
  4. LUCENTIS [Suspect]
     Active Substance: RANIBIZUMAB
     Dosage: UNK
     Route: 031
     Dates: start: 20160630, end: 20160630
  5. BEPOTASTINE [Concomitant]
     Active Substance: BEPOTASTINE
     Indication: PRODUCT USED FOR UNKNOWN INDICATION
     Route: 048
  6. EYLEA [Suspect]
     Active Substance: AFLIBERCEPT
     Dosage: UNK, LEFT
     Route: 065
     Dates: start: 20151027, end: 20151027
  7. LUCENTIS [Suspect]
     Active Substance: RANIBIZUMAB
     Indication: DIABETIC RETINAL OEDEMA
     Dosage: LEFT
     Route: 031
     Dates: start: 20150609, end: 20150609
  8. LUCENTIS [Suspect]
     Active Substance: RANIBIZUMAB
     Dosage: UNK, LEFT
     Route: 031
     Dates: start: 20160524, end: 20160524
  9. SITAGLIPTIN [Concomitant]
     Active Substance: SITAGLIPTIN
     Indication: DIABETES MELLITUS
     Route: 048
     Dates: end: 20160411
  10. LUCENTIS [Suspect]
     Active Substance: RANIBIZUMAB
     Indication: DIABETIC RETINOPATHY
     Dosage: UNK, RIGHT
     Route: 031
     Dates: start: 20160517, end: 20160517
  11. EYLEA [Suspect]
     Active Substance: AFLIBERCEPT
     Dosage: UNK, RIGHT
     Route: 065
     Dates: start: 20151007, end: 20151007
  12. LUCENTIS [Suspect]
     Active Substance: RANIBIZUMAB
     Dosage: UNK
     Route: 031
     Dates: start: 20160728, end: 20160728
  13. EYLEA [Suspect]
     Active Substance: AFLIBERCEPT
     Indication: DIABETIC RETINOPATHY
     Dosage: RIGHT
     Route: 065
     Dates: start: 20150805, end: 20150805
  14. EYLEA [Suspect]
     Active Substance: AFLIBERCEPT
     Indication: DIABETIC RETINAL OEDEMA
     Dosage: UNK, LEFT
     Route: 065
     Dates: start: 20150902, end: 20150902

REACTIONS (6)
  - Renal impairment [Recovering/Resolving]
  - Anaemia [Recovered/Resolved]
  - Diabetic nephropathy [Unknown]
  - Hypertension [Recovered/Resolved]
  - Endothelial dysfunction [Unknown]
  - Oedema [Unknown]

NARRATIVE: CASE EVENT DATE: 201509
